FAERS Safety Report 20408643 (Version 1)
Quarter: 2022Q1

REPORT INFORMATION
  Report Type: Spontaneous
  Country: CN (occurrence: CN)
  Receive Date: 20220201
  Receipt Date: 20220201
  Transmission Date: 20220423
  Serious: Yes (Hospitalization)
  Sender: FDA-Public Use
  Company Number: CN-ENDO PHARMACEUTICALS INC-2022-000319

PATIENT
  Age: 61 Year
  Sex: Male

DRUGS (2)
  1. COLCHICINE [Suspect]
     Active Substance: COLCHICINE
     Indication: Gout
     Dosage: UNK UNKNOWN, UNKNOWN (TEMPORALLY)
     Route: 065
  2. COLCHICINE [Suspect]
     Active Substance: COLCHICINE
     Dosage: 30 MG, MONTHLY (DISCONTINUOUSLY OVER THE PAST FIVE YEARS)
     Route: 065

REACTIONS (5)
  - Gastric ulcer [Recovered/Resolved]
  - Tooth infection [Unknown]
  - Intentional product misuse [Recovered/Resolved]
  - Neuromyopathy [Not Recovered/Not Resolved]
  - Overdose [Recovered/Resolved]
